FAERS Safety Report 18313126 (Version 1)
Quarter: 2020Q3

REPORT INFORMATION
  Report Type: Spontaneous
  Country: CN (occurrence: CN)
  Receive Date: 20200925
  Receipt Date: 20200925
  Transmission Date: 20201103
  Serious: Yes (Other)
  Sender: FDA-Public Use
  Company Number: CN-PFIZER INC-2020371149

PATIENT
  Age: 14 Year
  Sex: Female

DRUGS (12)
  1. CELLCEPT [Concomitant]
     Active Substance: MYCOPHENOLATE MOFETIL\MYCOPHENOLATE MOFETIL HYDROCHLORIDE
     Indication: BONE MARROW TRANSPLANT REJECTION
     Dosage: 0.500 G, 2X/DAY
     Route: 048
     Dates: start: 20200701, end: 20200720
  2. POLYENE PHOSPHATIDYLCHOLINE [Concomitant]
     Active Substance: PHOSPHOLIPID
     Indication: PROPHYLAXIS
     Dosage: UNK
  3. DECITABINE. [Concomitant]
     Active Substance: DECITABINE
     Dosage: UNK
     Dates: start: 2020
  4. LI KE WEI [GANCICLOVIR] [Concomitant]
     Active Substance: GANCICLOVIR
     Indication: VIRAL INFECTION
     Dosage: 0.250 G, 2X/DAY
     Route: 041
     Dates: start: 20200701, end: 20200721
  5. URSODEOXYCHOLIC ACID [Concomitant]
     Active Substance: URSODIOL
     Indication: PROPHYLAXIS
     Dosage: UNK
  6. CYTARABINE. [Concomitant]
     Active Substance: CYTARABINE
     Dosage: UNK
     Dates: start: 2020
  7. BUSULFAN. [Suspect]
     Active Substance: BUSULFAN
     Dosage: UNK
     Dates: start: 20200707
  8. VFEND [Concomitant]
     Active Substance: VORICONAZOLE
     Indication: FUNGAL INFECTION
     Dosage: 0.200 G, 2X/DAY
     Route: 041
     Dates: start: 20200701, end: 20200720
  9. METHOTREXATE. [Suspect]
     Active Substance: METHOTREXATE
     Indication: PROPHYLAXIS AGAINST GRAFT VERSUS HOST DISEASE
     Dosage: UNK
     Dates: start: 20200715
  10. ADEMETIONINE 1,4?BUTANEDISULFONATE [Suspect]
     Active Substance: ADEMETIONINE BUTANEDISULFONATE
     Dosage: UNK
     Dates: start: 20200706
  11. FLUDARABINE [Concomitant]
     Active Substance: FLUDARABINE PHOSPHATE
     Dosage: UNK
     Dates: start: 2020
  12. MAGNESIUM ISOGLYCYRRHIZINATE [Concomitant]
     Active Substance: MAGNESIUM ISOGLYCYRRHIZINATE
     Indication: PROPHYLAXIS
     Dosage: UNK

REACTIONS (5)
  - Blood alkaline phosphatase increased [Unknown]
  - Off label use [Unknown]
  - Blood bilirubin increased [Recovering/Resolving]
  - Product use in unapproved indication [Unknown]
  - Bilirubin conjugated increased [Recovering/Resolving]

NARRATIVE: CASE EVENT DATE: 20200715
